FAERS Safety Report 21832237 (Version 1)
Quarter: 2023Q1

REPORT INFORMATION
  Report Type: Spontaneous
  Country: NL (occurrence: NL)
  Receive Date: 20230106
  Receipt Date: 20230106
  Transmission Date: 20230418
  Serious: Yes (Other)
  Sender: FDA-Public Use
  Company Number: None

PATIENT
  Sex: Female
  Weight: 95 kg

DRUGS (6)
  1. QUETIAPINE [Suspect]
     Active Substance: QUETIAPINE
     Indication: Panic reaction
     Dosage: 1X DAILY 1 TABLET 25 MILLIGRAM, QD
     Route: 065
     Dates: start: 20180501
  2. QUETIAPINE [Suspect]
     Active Substance: QUETIAPINE
     Indication: Restlessness
  3. QUETIAPINE [Suspect]
     Active Substance: QUETIAPINE
     Indication: Poor quality sleep
  4. QUETIAPINE [Suspect]
     Active Substance: QUETIAPINE
     Indication: Obsessive-compulsive disorder
  5. MESALAMINE [Concomitant]
     Active Substance: MESALAMINE
     Dosage: GASTRO-RESISTANT TABLET, 500 MG (MILLIGRAM)
     Route: 065
  6. VENLAFAXINE [Concomitant]
     Active Substance: VENLAFAXINE HYDROCHLORIDE
     Dosage: GASTRO-RESISTANT, CR, 150 MG (MILLIGRAM)
     Route: 065

REACTIONS (10)
  - Weight increased [Not Recovered/Not Resolved]
  - Hepatic steatosis [Unknown]
  - Snoring [Not Recovered/Not Resolved]
  - Thirst [Not Recovered/Not Resolved]
  - Nausea [Not Recovered/Not Resolved]
  - Fatigue [Not Recovered/Not Resolved]
  - Somnolence [Not Recovered/Not Resolved]
  - Sleep apnoea syndrome [Not Recovered/Not Resolved]
  - Heart rate increased [Not Recovered/Not Resolved]
  - Dry mouth [Unknown]
